FAERS Safety Report 12597223 (Version 1)
Quarter: 2016Q3

REPORT INFORMATION
  Report Type: Report from Study
  Country: KR (occurrence: KR)
  Receive Date: 20160726
  Receipt Date: 20160726
  Transmission Date: 20161109
  Serious: Yes (Hospitalization)
  Sender: FDA-Public Use
  Company Number: KR-B.I. PHARMACEUTICALS,INC./RIDGEFIELD-2016-BI-06628RK

PATIENT
  Age: 60 Year
  Sex: Female

DRUGS (2)
  1. GILOTRIF [Suspect]
     Active Substance: AFATINIB
     Dosage: 30 MG
     Route: 048
  2. GILOTRIF [Suspect]
     Active Substance: AFATINIB
     Indication: NON-SMALL CELL LUNG CANCER
     Dosage: 40 MG
     Route: 048
     Dates: start: 20160113

REACTIONS (4)
  - Vomiting [Recovered/Resolved]
  - Dizziness [Recovered/Resolved]
  - Headache [Recovered/Resolved]
  - Diarrhoea [Not Recovered/Not Resolved]
